FAERS Safety Report 13441276 (Version 2)
Quarter: 2017Q2

REPORT INFORMATION
  Report Type: Spontaneous
  Country: US (occurrence: US)
  Receive Date: 20170413
  Receipt Date: 20170425
  Transmission Date: 20170830
  Serious: Yes (Death)
  Sender: FDA-Public Use
  Company Number: US-CELGENEUS-USA-20170403166

PATIENT
  Age: 58 Year
  Sex: Female
  Weight: 88.53 kg

DRUGS (1)
  1. REVLIMID [Suspect]
     Active Substance: LENALIDOMIDE
     Indication: PLASMA CELL MYELOMA
     Dosage: 10 MILLIGRAM
     Route: 048
     Dates: start: 20160921

REACTIONS (5)
  - Acute respiratory failure [Fatal]
  - Fluid overload [Fatal]
  - Multiple organ dysfunction syndrome [Fatal]
  - Acidosis [Fatal]
  - Shock [Fatal]

NARRATIVE: CASE EVENT DATE: 20170409
